FAERS Safety Report 4835847-0 (Version None)
Quarter: 2005Q4

REPORT INFORMATION
  Report Type: 
  Country: None (occurrence: None)
  Receive Date: 20051118
  Receipt Date: 20051107
  Transmission Date: 20060501
  Serious: Yes (Other)
  Sender: FDA-Public Use
  Company Number: 20051544389

PATIENT
  Sex: Female
  Weight: 74.8435 kg

DRUGS (11)
  1. CELEBREX [Suspect]
     Indication: OSTEOARTHRITIS
     Dosage: 200 MG (200 MG, 1 IN 1 D)
  2. VIOXX [Suspect]
     Indication: OSTEOARTHRITIS
     Dosage: OSTEOARTHRITIS
  3. LEVOYL (LEVOTHYROXINE SODIUM) [Concomitant]
  4. VERAPAMIL [Concomitant]
  5. HYDROCHLOROTHIAZIDE [Suspect]
  6. BENAZEPRIL HCL [Concomitant]
  7. FOSAMAX [Concomitant]
  8. CLONIDINE [Concomitant]
  9. AMITRIPTYLINE HCL [Concomitant]
  10. PRAVACHOL [Concomitant]
  11. PROTONIX [Concomitant]

REACTIONS (5)
  - ARTHRALGIA [None]
  - BLOOD CHOLESTEROL INCREASED [None]
  - DRUG INEFFECTIVE [None]
  - PAIN IN EXTREMITY [None]
  - VENTRICULAR HYPERTROPHY [None]
